FAERS Safety Report 6208733-1 (Version None)
Quarter: 2009Q2

REPORT INFORMATION
  Report Type: 
  Country: None (occurrence: None)
  Receive Date: 20090529
  Receipt Date: 20090522
  Transmission Date: 20091009
  Serious: Yes (Hospitalization)
  Sender: FDA-Public Use
  Company Number: US-WYE-H09452109

PATIENT
  Age: 70 Year
  Sex: Female

DRUGS (1)
  1. TEMSIROLIMUS [Suspect]
     Indication: ENDOMETRIAL CANCER
     Dosage: 25 MG  DAYS 1, 8, 15, 22 EVERY 4 WEEKS
     Route: 042
     Dates: start: 20060926, end: 20061107

REACTIONS (2)
  - DEHYDRATION [None]
  - HYPONATRAEMIA [None]
